FAERS Safety Report 6301559-X (Version None)
Quarter: 2009Q3

REPORT INFORMATION
  Report Type: 
  Country: None (occurrence: None)
  Receive Date: 20090807
  Receipt Date: 20090729
  Transmission Date: 20100115
  Serious: Yes (Death)
  Sender: FDA-Public Use
  Company Number: US-NOVOPROD-289479

PATIENT
  Age: 64 Year
  Sex: Female
  Weight: 117.46 kg

DRUGS (11)
  1. NOVOLOG MIX 70/30 [Suspect]
     Indication: INSULIN-REQUIRING TYPE 2 DIABETES MELLITUS
     Dosage: 55 U QAM AND 60 U QHS
     Route: 058
  2. NOVOLOG MIX 70/30 [Suspect]
     Dosage: 55 U QAM AND 60 U QHS
     Route: 058
  3. NOVOLOG MIX 70/30 [Suspect]
     Dosage: 55 U QAM AND 60 U QHS
     Route: 058
  4. NOVOLOG MIX 70/30 [Suspect]
     Dosage: 55 U QAM AND 60 U QHS
     Route: 058
  5. NOVOLOG MIX 70/30 [Suspect]
     Dosage: 55 U QAM AND 60 U QHS
     Route: 058
  6. NOVOLOG MIX 70/30 [Suspect]
     Dosage: 55 U QAM AND 60 U QHS
     Route: 058
  7. METFORMIN [Concomitant]
     Indication: INSULIN-REQUIRING TYPE 2 DIABETES MELLITUS
     Route: 048
  8. LOPRESSOR [Concomitant]
     Indication: HYPERTENSION
     Route: 048
  9. AMIODARONE HCL [Concomitant]
     Indication: DRUG USE FOR UNKNOWN INDICATION
     Route: 048
  10. PROTONIX                           /01263201/ [Concomitant]
     Indication: GASTROOESOPHAGEAL REFLUX DISEASE
     Route: 048
  11. METOPROLOL TARTRATE [Concomitant]
     Indication: HYPERTENSION
     Route: 048

REACTIONS (2)
  - DEATH [None]
  - FALL [None]
